FAERS Safety Report 5907457-5 (Version None)
Quarter: 2008Q4

REPORT INFORMATION
  Report Type: 
  Country: None (occurrence: None)
  Receive Date: 20081003
  Receipt Date: 20080925
  Transmission Date: 20090506
  Serious: Yes (Hospitalization)
  Sender: FDA-Public Use
  Company Number: B0536765A

PATIENT
  Age: 75 Year
  Sex: Male
  Weight: 73 kg

DRUGS (8)
  1. SERETIDE [Suspect]
     Indication: DRUG USE FOR UNKNOWN INDICATION
     Dosage: 500MCG TWICE PER DAY
     Route: 055
     Dates: end: 20080729
  2. AMIODARONE [Suspect]
     Indication: DRUG USE FOR UNKNOWN INDICATION
     Dosage: 200MG FIVE TIMES PER WEEK
     Route: 048
     Dates: end: 20080729
  3. LIPANTHYL [Suspect]
     Indication: DRUG USE FOR UNKNOWN INDICATION
     Dosage: 67MG PER DAY
     Route: 048
     Dates: end: 20080729
  4. ALDACTAZIDE [Suspect]
     Indication: DRUG USE FOR UNKNOWN INDICATION
     Dosage: 1UNIT PER DAY
     Route: 048
     Dates: end: 20080729
  5. PREVISCAN [Suspect]
     Indication: DRUG USE FOR UNKNOWN INDICATION
     Dosage: 15MG PER DAY
     Route: 048
     Dates: end: 20080729
  6. RAMIPRIL [Suspect]
     Indication: DRUG USE FOR UNKNOWN INDICATION
     Dosage: 10MG PER DAY
     Route: 048
     Dates: end: 20080729
  7. ACETAMINOPHEN [Suspect]
     Indication: DRUG USE FOR UNKNOWN INDICATION
     Route: 048
     Dates: end: 20080729
  8. NEBIVOLOL HCL [Suspect]
     Indication: DRUG USE FOR UNKNOWN INDICATION
     Dosage: 5MG PER DAY
     Route: 048
     Dates: end: 20080729

REACTIONS (11)
  - ANTICOAGULATION DRUG LEVEL ABOVE THERAPEUTIC [None]
  - COUGH [None]
  - DYSPNOEA [None]
  - INFLAMMATION [None]
  - INTERSTITIAL LUNG DISEASE [None]
  - LUNG DISORDER [None]
  - OLIGURIA [None]
  - PULMONARY OEDEMA [None]
  - PYREXIA [None]
  - RENAL FAILURE [None]
  - RESPIRATORY FAILURE [None]
